FAERS Safety Report 9613823 (Version 1)
Quarter: 2013Q4

REPORT INFORMATION
  Report Type: Spontaneous
  Country: US (occurrence: US)
  Receive Date: 20131010
  Receipt Date: 20131010
  Transmission Date: 20140711
  Serious: No
  Sender: FDA-Public Use
  Company Number: US-ALLERGAN-1218402US

PATIENT
  Age: 73 Year
  Sex: Female

DRUGS (1)
  1. VANIQA [Suspect]
     Indication: HAIR GROWTH ABNORMAL
     Dosage: APPLIED ON THE CHIN
     Route: 061
     Dates: start: 201207, end: 201207

REACTIONS (3)
  - Drug ineffective [Not Recovered/Not Resolved]
  - Product quality issue [Not Recovered/Not Resolved]
  - Hair growth abnormal [Not Recovered/Not Resolved]
